FAERS Safety Report 8514575-4 (Version None)
Quarter: 2012Q3

REPORT INFORMATION
  Report Type: 
  Country: None (occurrence: None)
  Receive Date: 20120717
  Receipt Date: 20120713
  Transmission Date: 20120928
  Serious: Yes (Other)
  Sender: FDA-Public Use
  Company Number: FR-SANOFI-AVENTIS-2012SA050229

PATIENT

DRUGS (1)
  1. CHLOROQUINE PHOSPHATE [Suspect]
     Indication: POISONING DELIBERATE
     Route: 065

REACTIONS (2)
  - TOXICITY TO VARIOUS AGENTS [None]
  - CARDIAC FAILURE [None]
